FAERS Safety Report 9174182 (Version 1)
Quarter: 2013Q1

REPORT INFORMATION
  Report Type: Spontaneous
  Country: US (occurrence: None)
  Receive Date: 20130315
  Receipt Date: 20130315
  Transmission Date: 20140127
  Serious: Yes (Other)
  Sender: FDA-Public Use
  Company Number: 2013-04272

PATIENT
  Age: 84 Year
  Sex: Female

DRUGS (2)
  1. NYSTATIN [Suspect]
     Indication: VULVOVAGINAL PRURITUS
     Dosage: UNK, BID, VAGINAL
     Dates: start: 201302
  2. NYSTATIN [Suspect]
     Indication: TINEA PEDIS
     Dosage: UNK, BID, VAGINAL
     Dates: start: 201302

REACTIONS (3)
  - Hypersensitivity [None]
  - Vulvovaginal burning sensation [None]
  - Drug ineffective [None]
